FAERS Safety Report 17050495 (Version 1)
Quarter: 2019Q4

REPORT INFORMATION
  Report Type: Spontaneous
  Country: KR (occurrence: KR)
  Receive Date: 20191119
  Receipt Date: 20191119
  Transmission Date: 20200122
  Serious: Yes (Other)
  Sender: FDA-Public Use
  Company Number: KR-EX USA HOLDINGS-EXHL20192437

PATIENT
  Age: 37 Year
  Sex: Female

DRUGS (8)
  1. KETOROLAC [Concomitant]
     Active Substance: KETOROLAC TROMETHAMINE
     Indication: IN VITRO FERTILISATION
     Dosage: 10 MG
     Route: 065
  2. PROGESTERONE. [Suspect]
     Active Substance: PROGESTERONE
     Indication: IN VITRO FERTILISATION
     Dosage: 200 MG
     Route: 030
  3. PREDNISOLONE. [Suspect]
     Active Substance: PREDNISOLONE
     Indication: IN VITRO FERTILISATION
     Dosage: 20 MG
     Route: 048
  4. CEFUROXIME. [Concomitant]
     Active Substance: CEFUROXIME
     Indication: IN VITRO FERTILISATION
     Dosage: 500 MG
     Route: 065
  5. ATROPINE. [Concomitant]
     Active Substance: ATROPINE
     Indication: ANAESTHESIA
     Dosage: 2 MG/KG
     Route: 065
  6. RANITIDINE. [Concomitant]
     Active Substance: RANITIDINE
     Indication: IN VITRO FERTILISATION
     Dosage: 300 MG
     Route: 065
  7. GENTAMICIN. [Concomitant]
     Active Substance: GENTAMICIN
     Indication: IN VITRO FERTILISATION
     Dosage: 50 MG
     Route: 065
  8. PROPOFOL. [Concomitant]
     Active Substance: PROPOFOL
     Indication: ANAESTHESIA
     Dosage: 2 MG/KG
     Route: 065

REACTIONS (5)
  - Diplopia [Recovering/Resolving]
  - Myasthenia gravis [Recovering/Resolving]
  - Extraocular muscle disorder [Recovering/Resolving]
  - Strabismus [Recovering/Resolving]
  - Eyelid ptosis [Recovering/Resolving]
